FAERS Safety Report 25763817 (Version 1)
Quarter: 2025Q3

REPORT INFORMATION
  Report Type: Spontaneous
  Country: US (occurrence: US)
  Receive Date: 20250905
  Receipt Date: 20250905
  Transmission Date: 20251020
  Serious: No
  Sender: DOMPE FARMACEUTICI
  Company Number: US-FARMAPROD-202411-3970

PATIENT
  Sex: Female

DRUGS (19)
  1. OXERVATE [Suspect]
     Active Substance: CENEGERMIN-BKBJ
     Indication: Neurotrophic keratopathy
     Route: 047
     Dates: start: 20240920
  2. LUCENTIS [Concomitant]
     Active Substance: RANIBIZUMAB
  3. VENLAFAXINE HYDROCHLORIDE [Concomitant]
     Active Substance: VENLAFAXINE HYDROCHLORIDE
  4. ARTIFICIAL TEARS [Concomitant]
  5. ACETAMINOPHEN [Concomitant]
     Active Substance: ACETAMINOPHEN
  6. ROSUVASTATIN CALCIUM [Concomitant]
     Active Substance: ROSUVASTATIN CALCIUM
  7. METHIMAZOLE [Concomitant]
     Active Substance: METHIMAZOLE
  8. ASPIRIN [Concomitant]
     Active Substance: ASPIRIN
  9. GLIPIZIDE [Concomitant]
     Active Substance: GLIPIZIDE
  10. LISINOPRIL [Concomitant]
     Active Substance: LISINOPRIL
  11. PROTONIX [Concomitant]
     Active Substance: PANTOPRAZOLE SODIUM
  12. VITAMIN D3 [Concomitant]
     Active Substance: CHOLECALCIFEROL
  13. CARVEDILOL [Concomitant]
     Active Substance: CARVEDILOL
  14. BRILINTA [Concomitant]
     Active Substance: TICAGRELOR
  15. NITROGLYCERIN [Concomitant]
     Active Substance: NITROGLYCERIN
  16. ROCKLATAN [Concomitant]
     Active Substance: LATANOPROST\NETARSUDIL MESYLATE
  17. LOTEPREDNOL ETABONATE [Concomitant]
     Active Substance: LOTEPREDNOL ETABONATE
  18. DORZOLAMIDE HYDROCHLORIDE [Concomitant]
     Active Substance: DORZOLAMIDE HYDROCHLORIDE
  19. COMBIGAN [Concomitant]
     Active Substance: BRIMONIDINE TARTRATE\TIMOLOL MALEATE

REACTIONS (2)
  - Eye pain [Unknown]
  - Eye irritation [Unknown]
